FAERS Safety Report 20468441 (Version 1)
Quarter: 2022Q1

REPORT INFORMATION
  Report Type: Spontaneous
  Country: US (occurrence: None)
  Receive Date: 20220211
  Receipt Date: 20220211
  Transmission Date: 20220423
  Serious: Yes (unspecified)
  Sender: FDA-Public Use
  Company Number: None

PATIENT
  Age: 24 Year
  Sex: Female
  Weight: 89.8 kg

DRUGS (2)
  1. REMICADE [Suspect]
     Active Substance: INFLIXIMAB
     Indication: Inflammatory bowel disease
     Dosage: FREQUENCY : ONCE;?
     Route: 041
     Dates: start: 20220121, end: 20220121
  2. Diphenhydramine 25 mg IVP [Concomitant]
     Dates: start: 20220121, end: 20220121

REACTIONS (3)
  - Throat irritation [None]
  - Paraesthesia [None]
  - Infusion related reaction [None]

NARRATIVE: CASE EVENT DATE: 20220121
